FAERS Safety Report 6434004-4 (Version None)
Quarter: 2009Q4

REPORT INFORMATION
  Report Type: 
  Country: None (occurrence: None)
  Receive Date: 20091110
  Receipt Date: 20091028
  Transmission Date: 20100525
  Serious: Yes (Other)
  Sender: FDA-Public Use
  Company Number: PHEH2009US13497

PATIENT
  Sex: Female

DRUGS (1)
  1. FORADIL [Suspect]
     Dosage: UNK, UNK

REACTIONS (5)
  - INJURY [None]
  - MEDICAL DEVICE COMPLICATION [None]
  - MUSCLE INJURY [None]
  - NERVE INJURY [None]
  - PRODUCT QUALITY ISSUE [None]
